FAERS Safety Report 5850060-6 (Version None)
Quarter: 2008Q3

REPORT INFORMATION
  Report Type: 
  Country: None (occurrence: None)
  Receive Date: 20080819
  Receipt Date: 20080808
  Transmission Date: 20090109
  Serious: Yes (Hospitalization)
  Sender: FDA-Public Use
  Company Number: US-WYE-H05451208

PATIENT
  Sex: Male
  Weight: 97.61 kg

DRUGS (3)
  1. PROTONIX [Suspect]
     Indication: CROHN'S DISEASE
     Dosage: UNKNOWN
  2. AZATHIOPRINE [Suspect]
     Indication: CROHN'S DISEASE
     Dosage: UNKNOWN
  3. REMICADE [Suspect]
     Indication: CROHN'S DISEASE
     Dosage: 27 INFUSIONS OF  5 MG/KG
     Route: 042
     Dates: start: 19991101, end: 20071101

REACTIONS (1)
  - CROHN'S DISEASE [None]
